FAERS Safety Report 8953283 (Version 1)
Quarter: 2012Q4

REPORT INFORMATION
  Report Type: 
  Country: US (occurrence: US)
  Receive Date: 20121206
  Receipt Date: 20121206
  Transmission Date: 20130627
  Serious: Yes (Hospitalization)
  Sender: FDA-Public Use
  Company Number: US-BAYER-2012-126135

PATIENT
  Age: 35 Year
  Sex: Female
  Weight: 83.9 kg

DRUGS (8)
  1. YAZ [Suspect]
  2. YASMIN [Suspect]
  3. OCELLA [Suspect]
  4. TRAMADOL [Concomitant]
  5. NASONEX [Concomitant]
  6. LIDODERM [Concomitant]
  7. VALIUM [Concomitant]
  8. PRENATAL VITAMIN. [Concomitant]

REACTIONS (1)
  - Pulmonary embolism [None]
